FAERS Safety Report 15290097 (Version 1)
Quarter: 2018Q3

REPORT INFORMATION
  Report Type: Spontaneous
  Country: CN (occurrence: CN)
  Receive Date: 20180817
  Receipt Date: 20180817
  Transmission Date: 20181010
  Serious: Yes (Other)
  Sender: FDA-Public Use
  Company Number: CN-PFIZER INC-2018326601

PATIENT
  Age: 45 Year
  Sex: Female

DRUGS (2)
  1. LIPITOR [Suspect]
     Active Substance: ATORVASTATIN CALCIUM
     Indication: LIPIDS INCREASED
     Dosage: 20 MG EVERY EVENING
     Route: 048
     Dates: start: 201807
  2. METFORMIN [Concomitant]
     Active Substance: METFORMIN HYDROCHLORIDE
     Indication: BLOOD GLUCOSE INCREASED
     Dosage: 0.5 G, 3X/DAY
     Route: 048
     Dates: start: 201807

REACTIONS (5)
  - Blood bilirubin increased [Recovering/Resolving]
  - Gamma-glutamyltransferase increased [Recovering/Resolving]
  - Hepatic enzyme increased [Recovering/Resolving]
  - Cholecystitis [Recovering/Resolving]
  - Disease recurrence [Recovering/Resolving]
